FAERS Safety Report 19405116 (Version 1)
Quarter: 2021Q2

REPORT INFORMATION
  Report Type: Spontaneous
  Country: US (occurrence: US)
  Receive Date: 20210611
  Receipt Date: 20210611
  Transmission Date: 20210717
  Serious: No
  Sender: FDA-Public Use
  Company Number: None

PATIENT
  Age: 58 Year
  Sex: Male

DRUGS (1)
  1. VARENICLINE (VARENICLINE TAB STARTER PACK, 53) [Suspect]
     Active Substance: VARENICLINE
     Indication: SMOKING CESSATION THERAPY
     Dates: start: 20210503, end: 20210518

REACTIONS (2)
  - Abnormal dreams [None]
  - Suicidal ideation [None]

NARRATIVE: CASE EVENT DATE: 20210518
